FAERS Safety Report 9078308 (Version 1)
Quarter: 2013Q1

REPORT INFORMATION
  Report Type: Report from Study
  Country: US (occurrence: US)
  Receive Date: 20130130
  Receipt Date: 20130130
  Transmission Date: 20140127
  Serious: No
  Sender: FDA-Public Use
  Company Number: US-ABBOTT-12P-163-0959203-00

PATIENT
  Age: 77 Year
  Sex: Male

DRUGS (9)
  1. HUMIRA 40 MG/0.8 ML PEN [Suspect]
     Indication: CROHN^S DISEASE
     Dates: start: 20120629, end: 20120629
  2. HUMIRA 40 MG/0.8 ML PEN [Suspect]
     Dates: start: 20120713
  3. HUMIRA 40 MG/0.8 ML PEN [Suspect]
     Dates: start: 20120629
  4. CIPROFLOXACIN [Suspect]
     Indication: INFECTION PROPHYLAXIS
  5. FLAGYL [Suspect]
     Indication: INFECTION PROPHYLAXIS
  6. ZOCOR [Concomitant]
     Indication: BLOOD CHOLESTEROL
     Dosage: DAILY
  7. AMARYL [Concomitant]
     Indication: DIABETES MELLITUS
  8. ENTOCORT [Concomitant]
     Indication: PRODUCT USED FOR UNKNOWN INDICATION
     Dosage: 3 CAPSULES DAILY
  9. GLYBURIDE [Concomitant]
     Indication: DIABETES MELLITUS
     Dosage: DAILY

REACTIONS (8)
  - Rhinorrhoea [Unknown]
  - Pouchitis [Not Recovered/Not Resolved]
  - Injection site pain [Not Recovered/Not Resolved]
  - Vomiting [Unknown]
  - Pain [Unknown]
  - Fatigue [Unknown]
  - Feeling abnormal [Unknown]
  - Unevaluable event [Recovering/Resolving]
